FAERS Safety Report 20247911 (Version 1)
Quarter: 2021Q4

REPORT INFORMATION
  Report Type: Spontaneous
  Country: US (occurrence: None)
  Receive Date: 20211228
  Receipt Date: 20211228
  Transmission Date: 20220303
  Serious: Yes (Hospitalization)
  Sender: FDA-Public Use
  Company Number: None

PATIENT
  Age: 65 Year
  Sex: Male

DRUGS (1)
  1. WARFARIN SODIUM [Suspect]
     Active Substance: WARFARIN SODIUM
     Dates: start: 20210819

REACTIONS (5)
  - Anticoagulation drug level above therapeutic [None]
  - Product dispensing error [None]
  - Kidney rupture [None]
  - Renal haemorrhage [None]
  - Urinary tract obstruction [None]

NARRATIVE: CASE EVENT DATE: 20211003
